FAERS Safety Report 12843683 (Version 1)
Quarter: 2016Q4

REPORT INFORMATION
  Report Type: Spontaneous
  Country: CN (occurrence: CN)
  Receive Date: 20161013
  Receipt Date: 20161013
  Transmission Date: 20170207
  Serious: Yes (Other)
  Sender: FDA-Public Use
  Company Number: CN-MYLANLABS-2016M1043838

PATIENT

DRUGS (8)
  1. INDOMETACIN [Suspect]
     Active Substance: INDOMETHACIN
  2. CEFOTIAM [Suspect]
     Active Substance: CEFOTIAM
  3. VANCOMYCIN [Suspect]
     Active Substance: VANCOMYCIN
  4. MEROPENEM. [Suspect]
     Active Substance: MEROPENEM
  5. AZITHROMYCIN ANHYDROUS. [Suspect]
     Active Substance: AZITHROMYCIN ANHYDROUS
  6. OSELTAMIVIR [Suspect]
     Active Substance: OSELTAMIVIR
  7. CEFTRIAXONE. [Suspect]
     Active Substance: CEFTRIAXONE
  8. THYMALFASIN [Suspect]
     Active Substance: THYMALFASIN

REACTIONS (3)
  - Foetal exposure during pregnancy [Recovered/Resolved]
  - Respiratory distress [Unknown]
  - Heart rate abnormal [Unknown]
